FAERS Safety Report 5399227-4 (Version None)
Quarter: 2007Q3

REPORT INFORMATION
  Report Type: 
  Country: None (occurrence: None)
  Receive Date: 20070727
  Receipt Date: 20070716
  Transmission Date: 20080115
  Serious: Yes (Hospitalization)
  Sender: FDA-Public Use
  Company Number: BE-AMGEN-US235181

PATIENT
  Age: 80 Year
  Sex: Female

DRUGS (3)
  1. ENBREL [Suspect]
     Indication: RHEUMATOID ARTHRITIS
     Route: 058
     Dates: start: 20030717, end: 20070201
  2. PREDNISOLONE [Concomitant]
     Indication: RHEUMATOID ARTHRITIS
  3. METHOTREXATE [Concomitant]
     Indication: RHEUMATOID ARTHRITIS

REACTIONS (6)
  - ATRIAL FIBRILLATION [None]
  - HAEMODIALYSIS [None]
  - NEPHROLITHIASIS [None]
  - RENAL FAILURE ACUTE [None]
  - STATUS EPILEPTICUS [None]
  - TOXIC SHOCK SYNDROME [None]
